FAERS Safety Report 4504150-0 (Version None)
Quarter: 2004Q4

REPORT INFORMATION
  Report Type: 
  Country: None (occurrence: None)
  Receive Date: 20041116
  Receipt Date: 20041116
  Transmission Date: 20050328
  Serious: Yes (Other)
  Sender: FDA-Public Use
  Company Number: None

PATIENT
  Age: 28 Year
  Sex: Female
  Weight: 73.3 kg

DRUGS (1)
  1. ARIPIPRAZOLE [Suspect]

REACTIONS (1)
  - PARKINSONISM [None]
